FAERS Safety Report 20266263 (Version 1)
Quarter: 2021Q4

REPORT INFORMATION
  Report Type: Report from Study
  Country: US (occurrence: US)
  Receive Date: 20211231
  Receipt Date: 20211231
  Transmission Date: 20220303
  Serious: Yes (Death)
  Sender: FDA-Public Use
  Company Number: US-NOVARTISPH-NVSC2021US300372

PATIENT
  Sex: Female

DRUGS (1)
  1. TABRECTA [Suspect]
     Active Substance: CAPMATINIB
     Indication: Metastases to lung
     Dosage: 200 MG, BID
     Route: 048

REACTIONS (1)
  - Death [Fatal]
